FAERS Safety Report 14083143 (Version 1)
Quarter: 2017Q4

REPORT INFORMATION
  Report Type: Report from Study
  Country: US (occurrence: US)
  Receive Date: 20171013
  Receipt Date: 20171013
  Transmission Date: 20180321
  Serious: Yes (Death)
  Sender: FDA-Public Use
  Company Number: US-VIFOR (INTERNATIONAL) INC.-VIT-2017-10193

PATIENT
  Age: 92 Year
  Sex: Female

DRUGS (17)
  1. COREG [Concomitant]
     Active Substance: CARVEDILOL
  2. LIPITOR [Concomitant]
     Active Substance: ATORVASTATIN CALCIUM
  3. NORVASC [Concomitant]
     Active Substance: AMLODIPINE BESYLATE
  4. IPRATROPIUM [Concomitant]
     Active Substance: IPRATROPIUM
  5. SALBUTAMOL [Concomitant]
     Active Substance: ALBUTEROL
  6. PROTONIX [Concomitant]
     Active Substance: PANTOPRAZOLE SODIUM
  7. ZOFRAN [Concomitant]
     Active Substance: ONDANSETRON HYDROCHLORIDE
  8. FUROSEMIDE. [Concomitant]
     Active Substance: FUROSEMIDE
  9. PLAVIX [Concomitant]
     Active Substance: CLOPIDOGREL BISULFATE
  10. FOSRENOL [Concomitant]
     Active Substance: LANTHANUM CARBONATE
  11. ASCORBIC ACID~~PYRIDOXINE HYDROCHLORIDE~~BIOTIN~~FOLIC ACID~~THIAMINE~~NICOTINIC ACID~~PANTOTHENIC A [Concomitant]
  12. VELTASSA [Suspect]
     Active Substance: PATIROMER
     Indication: HYPERKALAEMIA
     Route: 048
     Dates: start: 20170509, end: 20170919
  13. COLECALCIFEROL [Concomitant]
     Active Substance: CHOLECALCIFEROL
  14. LISINOPRIL. [Concomitant]
     Active Substance: LISINOPRIL
  15. GLIMEPIRIDE. [Concomitant]
     Active Substance: GLIMEPIRIDE
  16. FERROUS SULFATE. [Concomitant]
     Active Substance: FERROUS SULFATE
  17. CLONIDINE. [Concomitant]
     Active Substance: CLONIDINE

REACTIONS (2)
  - Off label use [Unknown]
  - Death [Fatal]

NARRATIVE: CASE EVENT DATE: 20170919
